FAERS Safety Report 16899210 (Version 1)
Quarter: 2019Q4

REPORT INFORMATION
  Report Type: Spontaneous
  Country: US (occurrence: US)
  Receive Date: 20191009
  Receipt Date: 20191009
  Transmission Date: 20200122
  Serious: No
  Sender: FDA-Public Use
  Company Number: US-PFIZER INC-2019435051

PATIENT
  Age: 58 Year
  Sex: Female
  Weight: 65.77 kg

DRUGS (1)
  1. GABAPENTIN. [Suspect]
     Active Substance: GABAPENTIN
     Indication: NEURALGIA
     Dosage: 3600 MG, DAILY
     Dates: start: 2015, end: 2017

REACTIONS (7)
  - Drug ineffective for unapproved indication [Unknown]
  - Insomnia [Unknown]
  - Crying [Unknown]
  - Burning sensation [Unknown]
  - Off label use [Unknown]
  - Fatigue [Unknown]
  - Pain [Unknown]

NARRATIVE: CASE EVENT DATE: 2015
